FAERS Safety Report 12574081 (Version 2)
Quarter: 2017Q3

REPORT INFORMATION
  Report Type: Spontaneous
  Country: US (occurrence: US)
  Receive Date: 20160720
  Receipt Date: 20170714
  Transmission Date: 20171127
  Serious: No
  Sender: FDA-Public Use
  Company Number: US-TEVA-669770USA

PATIENT
  Age: 36 Year
  Sex: Female

DRUGS (1)
  1. ZECUITY [Suspect]
     Active Substance: SUMATRIPTAN SUCCINATE
     Route: 062
     Dates: start: 20160613

REACTIONS (5)
  - Product physical issue [Unknown]
  - Application site pruritus [Unknown]
  - Application site paraesthesia [Unknown]
  - Application site erythema [Not Recovered/Not Resolved]
  - Skin irritation [Recovered/Resolved]

NARRATIVE: CASE EVENT DATE: 20160613
